FAERS Safety Report 15995052 (Version 1)
Quarter: 2019Q1

REPORT INFORMATION
  Report Type: Spontaneous
  Country: US (occurrence: US)
  Receive Date: 20190222
  Receipt Date: 20190222
  Transmission Date: 20190418
  Serious: No
  Sender: FDA-Public Use
  Company Number: US-APOTEX-2019AP005038

PATIENT
  Age: 68 Year
  Sex: Female

DRUGS (2)
  1. NICOTINE. [Suspect]
     Active Substance: NICOTINE
     Indication: SMOKING CESSATION THERAPY
     Dosage: STRENGTH: 14 MG
     Route: 062
     Dates: start: 201811, end: 201811
  2. NICOTINE. [Suspect]
     Active Substance: NICOTINE
     Dosage: STRENGTH: 21 MG
     Route: 062
     Dates: start: 201811, end: 201812

REACTIONS (3)
  - Product use issue [Unknown]
  - Incorrect dose administered [Unknown]
  - Drug ineffective [Unknown]
